FAERS Safety Report 22287197 (Version 1)
Quarter: 2023Q2

REPORT INFORMATION
  Report Type: Spontaneous
  Country: US (occurrence: US)
  Receive Date: 20230505
  Receipt Date: 20230505
  Transmission Date: 20230722
  Serious: Yes (Other)
  Sender: FDA-Public Use
  Company Number: US-35507-2023-03297

PATIENT
  Sex: Female
  Weight: 58.957 kg

DRUGS (1)
  1. SERTRALINE HYDROCHLORIDE [Suspect]
     Active Substance: SERTRALINE HYDROCHLORIDE
     Indication: Anxiety
     Dosage: 1 DOSAGE FORM, QD (THERAPY DURATION WAS 3 REFILLS)
     Route: 065
     Dates: start: 20230127

REACTIONS (6)
  - Mental impairment [Unknown]
  - Memory impairment [Unknown]
  - Disturbance in attention [Unknown]
  - Confusional state [Unknown]
  - Erythema [Unknown]
  - Hyponatraemia [Unknown]
